FAERS Safety Report 4764223-4 (Version None)
Quarter: 2005Q3

REPORT INFORMATION
  Report Type: 
  Country: None (occurrence: None)
  Receive Date: 20050906
  Receipt Date: 20050512
  Transmission Date: 20060218
  Serious: No
  Sender: FDA-Public Use
  Company Number: 2005-BP-07969BP

PATIENT
  Sex: Female

DRUGS (3)
  1. SPIRIVA [Suspect]
     Indication: BRONCHITIS
     Dosage: 18 MCG (18 MCG, QD) IH
     Route: 055
     Dates: start: 20050501, end: 20050503
  2. SPIRIVA [Suspect]
     Indication: EMPHYSEMA
     Dosage: 18 MCG (18 MCG, QD) IH
     Route: 055
     Dates: start: 20050501, end: 20050503
  3. GABAPENTIN [Concomitant]

REACTIONS (1)
  - CHEST PAIN [None]
